FAERS Safety Report 4777462-3 (Version None)
Quarter: 2005Q3

REPORT INFORMATION
  Report Type: 
  Country: None (occurrence: None)
  Receive Date: 20050915
  Receipt Date: 20050829
  Transmission Date: 20060218
  Serious: Yes (Death, Hospitalization, Other)
  Sender: FDA-Public Use
  Company Number: USA0507102794

PATIENT
  Age: 15 Year
  Sex: Male
  Weight: 27 kg

DRUGS (6)
  1. HUMATROPE [Suspect]
     Indication: BODY HEIGHT BELOW NORMAL
     Dosage: 1.4 MG DAY
     Dates: start: 20040916, end: 20050401
  2. PREDNISONE [Concomitant]
  3. FLAGYL [Concomitant]
  4. PROTONIX [Concomitant]
  5. OSCAL (CALCIUM CARBONATE) [Concomitant]
  6. NIFEREX (POLYSACCHARIDE-IRON COMPLEX) [Concomitant]

REACTIONS (6)
  - BURKITT'S LYMPHOMA [None]
  - COLITIS [None]
  - COLON NEOPLASM [None]
  - CROHN'S DISEASE [None]
  - DIARRHOEA [None]
  - RENAL FAILURE [None]
